FAERS Safety Report 17808447 (Version 2)
Quarter: 2020Q2

REPORT INFORMATION
  Report Type: Report from Study
  Country: TR (occurrence: TR)
  Receive Date: 20200520
  Receipt Date: 20200526
  Transmission Date: 20200714
  Serious: Yes (Hospitalization)
  Sender: FDA-Public Use
  Company Number: TR-AMGEN-TURCT2020078308

PATIENT
  Age: 71 Year
  Sex: Female

DRUGS (11)
  1. RABELIS [Concomitant]
     Dosage: UNK
     Dates: start: 2005
  2. DARBEPOETIN ALFA [Suspect]
     Active Substance: DARBEPOETIN ALFA
     Dosage: 40 MICROGRAM, Q4WK
     Route: 058
     Dates: start: 20181031, end: 20181106
  3. CARDURA [Concomitant]
     Active Substance: DOXAZOSIN MESYLATE
     Indication: HYPERVOLAEMIA
     Dosage: UNK
     Dates: start: 20190118
  4. DILATREND [Concomitant]
     Active Substance: CARVEDILOL
     Indication: HYPERVOLAEMIA
     Dosage: UNK
     Dates: start: 20190118
  5. BENIPIN [Concomitant]
     Dosage: UNK
     Dates: start: 2000
  6. DILATREND [Concomitant]
     Active Substance: CARVEDILOL
     Dosage: UNK
  7. FUROSEMIDE. [Concomitant]
     Active Substance: FUROSEMIDE
     Dosage: UNK
     Dates: start: 20190118
  8. DARBEPOETIN ALFA [Suspect]
     Active Substance: DARBEPOETIN ALFA
     Dosage: 20 MICROGRAM, Q4WK
     Route: 058
     Dates: start: 20181107, end: 20190101
  9. CHOLVAST [Concomitant]
     Dosage: UNK
     Dates: start: 2000
  10. DARBEPOETIN ALFA [Suspect]
     Active Substance: DARBEPOETIN ALFA
     Indication: ANAEMIA
     Dosage: 20 MICROGRAM, Q2WK
     Route: 058
     Dates: start: 20180725, end: 20181030
  11. DARBEPOETIN ALFA [Suspect]
     Active Substance: DARBEPOETIN ALFA
     Dosage: 40 MICROGRAM, Q4WK
     Route: 058
     Dates: start: 20190102, end: 20200323

REACTIONS (2)
  - Pulmonary hypertension [Recovered/Resolved]
  - Hypervolaemia [Recovered/Resolved]

NARRATIVE: CASE EVENT DATE: 20200115
